FAERS Safety Report 7214204-6 (Version None)
Quarter: 2011Q1

REPORT INFORMATION
  Report Type: 
  Country: None (occurrence: None)
  Receive Date: 20110107
  Receipt Date: 20101217
  Transmission Date: 20110831
  Serious: Yes (Death)
  Sender: FDA-Public Use
  Company Number: DE-PFIZER INC-DE-WYE-G05738710

PATIENT
  Age: 42 Year
  Sex: Male

DRUGS (38)
  1. ASPISOL [Suspect]
     Indication: THROMBOSIS PROPHYLAXIS
     Dosage: 250 MG, FREQUENCY UNKNOWN
     Route: 042
     Dates: start: 20080221, end: 20080225
  2. NEXIUM [Suspect]
     Dosage: 40 MG, UNK FREQUENCY
     Route: 042
     Dates: start: 20080222
  3. SULFADIAZINE [Suspect]
     Indication: TOXOPLASMOSIS
     Dosage: 1.5 G, 3X/DAY
     Route: 042
     Dates: start: 20080225, end: 20080306
  4. TAVANIC [Suspect]
     Indication: SEPSIS
     Dosage: 500 MG, 2X/DAY
     Route: 042
     Dates: start: 20080301, end: 20080306
  5. SODIUM CHLORIDE [Concomitant]
     Dosage: UNK
     Route: 048
     Dates: start: 20080305, end: 20080306
  6. VITAMIN B1 TAB [Concomitant]
     Dosage: UNK
     Route: 048
     Dates: start: 20080229, end: 20090306
  7. LAVASEPT [Concomitant]
     Dosage: UNK
     Route: 065
     Dates: start: 20080227, end: 20080306
  8. MAGNESIOCARD [Concomitant]
     Dosage: UNK
     Route: 042
     Dates: start: 20080306, end: 20080306
  9. KONTRAST U [Concomitant]
     Dosage: UNK
     Route: 042
     Dates: start: 20080222, end: 20080222
  10. KONTRAST U [Concomitant]
     Dosage: UNK
     Route: 042
     Dates: start: 20080228, end: 20080228
  11. ADVANTAN [Concomitant]
     Dosage: UNK
     Route: 061
     Dates: start: 20080225, end: 20080227
  12. VITAMIN B1 TAB [Concomitant]
     Dosage: UNK
     Route: 042
     Dates: start: 20080221, end: 20080229
  13. HALDOL [Suspect]
     Indication: HALLUCINATION
     Dosage: 5.0 MG, 3X/DAY
     Route: 042
     Dates: start: 20080221, end: 20080222
  14. TAVOR [Suspect]
     Indication: HALLUCINATION
     Dosage: 0.5 DF, 3X/DAY
     Route: 042
     Dates: start: 20080221
  15. CILOXAN [Suspect]
     Indication: EAR INFECTION
     Dosage: 1 DF, 3X/DAY
     Route: 065
     Dates: start: 20080227, end: 20080306
  16. CALCIUM FOLINATE [Concomitant]
     Dosage: UNK
     Route: 048
     Dates: start: 20080225, end: 20080306
  17. EUNERPAN [Concomitant]
     Dosage: UNK
     Route: 048
     Dates: start: 20080304, end: 20080305
  18. ARTERENOL [Concomitant]
     Dosage: UNK
     Route: 042
     Dates: start: 20080306, end: 20080308
  19. TAZOBAC [Suspect]
     Dosage: 4.5 MG, 3X/DAY
     Route: 042
     Dates: start: 20080226, end: 20080306
  20. HALDOL [Suspect]
     Dosage: 5.0 MG, 3X/DAY
     Route: 048
     Dates: start: 20080302, end: 20080306
  21. PARACETAMOL [Suspect]
     Indication: PYREXIA
     Dosage: UNK
     Route: 048
     Dates: start: 20080221, end: 20080306
  22. FRAGMIN [Suspect]
     Indication: THROMBOSIS PROPHYLAXIS
     Dosage: 0.2 ML, 1X/DAY
     Route: 058
     Dates: start: 20080221, end: 20080306
  23. DARAPRIM [Suspect]
     Indication: TOXOPLASMOSIS
     Dosage: 25 MG, 2X/DAY
     Route: 048
     Dates: start: 20080225
  24. CLINDAMYCIN HCL [Suspect]
     Indication: SEPSIS
     Dosage: 600 MG, 3X/DAY
     Route: 042
     Dates: start: 20080306
  25. KONTRAST U [Concomitant]
     Dosage: UNK
     Route: 042
     Dates: start: 20080304, end: 20080305
  26. HALDOL [Suspect]
     Dosage: 5.0 MG, 2X/DAY
     Route: 042
     Dates: start: 20080224, end: 20080301
  27. INSUMAN [Suspect]
     Indication: HYPERGLYCAEMIA
     Dosage: UNK
     Route: 042
     Dates: start: 20080221, end: 20080308
  28. LAVASEPT [Concomitant]
     Dosage: UNK
     Route: 061
     Dates: start: 20080223, end: 20080226
  29. AMINOVEL [Concomitant]
     Dosage: UNK
     Route: 065
     Dates: start: 20080221, end: 20080306
  30. CEFTAZIDIME (FORTAZ) [Suspect]
     Indication: SEPSIS
     Dosage: 2.0 G, 3X/DAY
     Route: 042
     Dates: start: 20080221, end: 20080226
  31. VANCOMYCIN [Suspect]
     Dosage: 1.0 G, 2X/DAY
     Route: 042
     Dates: start: 20080306
  32. NIZORAL [Concomitant]
     Dosage: UNK
     Route: 061
     Dates: start: 20080225, end: 20080306
  33. THIAMINE HYDROCHLORIDE [Concomitant]
     Dosage: UNK
     Route: 048
     Dates: start: 20080229, end: 20090306
  34. PARACETAMOL [Suspect]
     Dosage: UNK
  35. VANCOMYCIN [Suspect]
     Indication: EAR INFECTION
     Dosage: 1.0 G, 2X/DAY
     Route: 042
     Dates: start: 20080221, end: 20080301
  36. KONAKION [Concomitant]
     Dosage: UNK
     Route: 042
     Dates: start: 20080228, end: 20080305
  37. THIAMINE HYDROCHLORIDE [Concomitant]
     Dosage: UNK
     Route: 042
     Dates: start: 20080221, end: 20080229
  38. ZOVIRAX [Suspect]
     Indication: ENCEPHALITIS HERPES
     Dosage: 750.0 MG, 3X/DAY
     Route: 042
     Dates: start: 20080221, end: 20080225

REACTIONS (2)
  - TOXIC EPIDERMAL NECROLYSIS [None]
  - STEVENS-JOHNSON SYNDROME [None]
